FAERS Safety Report 7494501-X (Version None)
Quarter: 2011Q2

REPORT INFORMATION
  Report Type: 
  Country: None (occurrence: None)
  Receive Date: 20110520
  Receipt Date: 20110506
  Transmission Date: 20111010
  Serious: Yes (Other)
  Sender: FDA-Public Use
  Company Number: PHHY2011BR38985

PATIENT
  Age: 32 Year
  Sex: Male

DRUGS (6)
  1. FORMOTEROL FUMARATE [Concomitant]
  2. FUROSEMIDE [Concomitant]
  3. RASILEZ [Suspect]
     Indication: HYPERTENSION
     Dosage: 300 MG, UNK
  4. SPOROLACTONE [Concomitant]
  5. ENALAPRIL MALEATE [Concomitant]
  6. DIGOXIN [Concomitant]

REACTIONS (1)
  - BRONCHOSPASM [None]
